FAERS Safety Report 21721779 (Version 1)
Quarter: 2022Q4

REPORT INFORMATION
  Report Type: Spontaneous
  Country: US (occurrence: US)
  Receive Date: 20221213
  Receipt Date: 20221213
  Transmission Date: 20230112
  Serious: No
  Sender: FDA-Public Use
  Company Number: US-AMNEAL PHARMACEUTICALS-2022-AMRX-01339

PATIENT
  Sex: Female
  Weight: 90.703 kg

DRUGS (3)
  1. COLESTIPOL HYDROCHLORIDE [Suspect]
     Active Substance: COLESTIPOL HYDROCHLORIDE
     Indication: Blood cholesterol increased
     Dosage: 1 TABLETS, 2 /DAY
     Route: 048
     Dates: start: 202006
  2. TYLENOL [Concomitant]
     Active Substance: ACETAMINOPHEN
     Indication: Product used for unknown indication
     Dosage: UNK
     Route: 065
     Dates: start: 202009
  3. ACETAMIDE [Concomitant]
     Active Substance: ACETAMIDE
     Indication: Product used for unknown indication
     Dosage: 1 TABLETS, DAILY
     Route: 065
     Dates: start: 202009

REACTIONS (2)
  - Choking [Recovered/Resolved]
  - Product physical issue [Unknown]

NARRATIVE: CASE EVENT DATE: 20220101
